FAERS Safety Report 9264836 (Version 1)
Quarter: 2013Q2

REPORT INFORMATION
  Report Type: Spontaneous
  Country: US (occurrence: None)
  Receive Date: 20130430
  Receipt Date: 20130430
  Transmission Date: 20140414
  Serious: Yes (Life-Threatening, Hospitalization)
  Sender: FDA-Public Use
  Company Number: None

PATIENT
  Age: 57 Year
  Sex: Male
  Weight: 121.56 kg

DRUGS (2)
  1. ORENCIA [Suspect]
     Indication: ARTHRITIS
     Dosage: UNKNOWN   1ST TIME GIVEN
     Dates: start: 20130322
  2. ORENCIA [Concomitant]

REACTIONS (2)
  - Pneumonia [None]
  - Body temperature increased [None]
